FAERS Safety Report 17598548 (Version 1)
Quarter: 2020Q1

REPORT INFORMATION
  Report Type: Spontaneous
  Country: US (occurrence: US)
  Receive Date: 20200330
  Receipt Date: 20200330
  Transmission Date: 20200409
  Serious: No
  Sender: FDA-Public Use
  Company Number: US-INDIVIOR LIMITED-INDV-122825-2019

PATIENT
  Age: 33 Year
  Sex: Male

DRUGS (2)
  1. SUBLOCADE [Suspect]
     Active Substance: BUPRENORPHINE
     Indication: DRUG DEPENDENCE
     Dosage: 300 MILLIGRAM, QMO (FOUR INJECTIONS)
     Route: 065
     Dates: start: 201910, end: 202002
  2. SUBLOCADE [Suspect]
     Active Substance: BUPRENORPHINE
     Indication: DRUG DEPENDENCE
     Dosage: 100 MILLIGRAM, QMO
     Route: 065
     Dates: start: 202002

REACTIONS (5)
  - Injection site erosion [Recovered/Resolved]
  - Drug withdrawal syndrome [Unknown]
  - Injection site pain [Recovered/Resolved]
  - Injection site infection [Recovered/Resolved]
  - Constipation [Recovering/Resolving]

NARRATIVE: CASE EVENT DATE: 20191204
